FAERS Safety Report 13260122 (Version 4)
Quarter: 2017Q2

REPORT INFORMATION
  Report Type: Report from Study
  Country: CA (occurrence: CA)
  Receive Date: 20170222
  Receipt Date: 20170511
  Transmission Date: 20170830
  Serious: Yes (Other)
  Sender: FDA-Public Use
  Company Number: CA-JNJFOC-20170217231

PATIENT
  Age: 11 Year
  Sex: Male
  Weight: 40 kg

DRUGS (2)
  1. REMICADE [Suspect]
     Active Substance: INFLIXIMAB
     Indication: COLITIS ULCERATIVE
     Route: 042
     Dates: start: 20170314
  2. REMICADE [Suspect]
     Active Substance: INFLIXIMAB
     Indication: COLITIS ULCERATIVE
     Route: 042
     Dates: start: 20150516

REACTIONS (2)
  - Colitis ulcerative [Recovering/Resolving]
  - Drug level below therapeutic [Unknown]

NARRATIVE: CASE EVENT DATE: 20170215
